FAERS Safety Report 10133041 (Version 1)
Quarter: 2014Q2

REPORT INFORMATION
  Report Type: Spontaneous
  Country: US (occurrence: US)
  Receive Date: 20140428
  Receipt Date: 20140428
  Transmission Date: 20141212
  Serious: Yes (Death, Life-Threatening)
  Sender: FDA-Public Use
  Company Number: US-BRACCO-009819

PATIENT
  Age: 51 Year
  Sex: Male
  Weight: 98 kg

DRUGS (2)
  1. PROHANCE [Suspect]
     Indication: NUCLEAR MAGNETIC RESONANCE IMAGING BRAIN
     Route: 042
     Dates: start: 20130830, end: 20130830
  2. ANTIHYPERTENSIVES [Concomitant]

REACTIONS (1)
  - Anaphylactic reaction [Fatal]
